FAERS Safety Report 8394820-9 (Version None)
Quarter: 2012Q2

REPORT INFORMATION
  Report Type: 
  Country: None (occurrence: None)
  Receive Date: 20120524
  Receipt Date: 20120510
  Transmission Date: 20120825
  Serious: Yes (Other)
  Sender: FDA-Public Use
  Company Number: JPI-P-020985

PATIENT
  Age: 32 Year
  Sex: Female
  Weight: 35.8342 kg

DRUGS (13)
  1. XYREM [Suspect]
     Indication: MYOCLONUS
     Dosage: SEE IMAGE
     Route: 048
     Dates: start: 20120405, end: 20120408
  2. XYREM [Suspect]
     Indication: SLEEP DISORDER
     Dosage: SEE IMAGE
     Route: 048
     Dates: start: 20120405, end: 20120408
  3. XYREM [Suspect]
     Indication: MYOCLONUS
     Dosage: SEE IMAGE
     Route: 048
     Dates: start: 20120401, end: 20120401
  4. XYREM [Suspect]
     Indication: SLEEP DISORDER
     Dosage: SEE IMAGE
     Route: 048
     Dates: start: 20120401, end: 20120401
  5. XYREM [Suspect]
     Indication: MYOCLONUS
     Dosage: SEE IMAGE
     Route: 048
     Dates: start: 20120409, end: 20120401
  6. XYREM [Suspect]
     Indication: SLEEP DISORDER
     Dosage: SEE IMAGE
     Route: 048
     Dates: start: 20120409, end: 20120401
  7. XYREM [Suspect]
     Indication: MYOCLONUS
     Dosage: SEE IMAGE
     Route: 048
     Dates: start: 20120403, end: 20120403
  8. XYREM [Suspect]
     Indication: SLEEP DISORDER
     Dosage: SEE IMAGE
     Route: 048
     Dates: start: 20120403, end: 20120403
  9. ROPINIROLE [Concomitant]
  10. CITALOPRAM HYDROBROMIDE [Concomitant]
  11. METHOCARBAMOL (750 MILLIGRAM, TABLETS) [Concomitant]
  12. PREGABALIN [Concomitant]
  13. LEVETIRACETAM [Concomitant]

REACTIONS (3)
  - CONDITION AGGRAVATED [None]
  - CONVULSION [None]
  - MYOCLONUS [None]
